FAERS Safety Report 8813789 (Version 5)
Quarter: 2013Q2

REPORT INFORMATION
  Report Type: Spontaneous
  Country: US (occurrence: US)
  Receive Date: 20120928
  Receipt Date: 20130418
  Transmission Date: 20140414
  Serious: No
  Sender: FDA-Public Use
  Company Number: US-BIOGENIDEC-2012BI039229

PATIENT
  Age: 58 Year
  Sex: Female

DRUGS (1)
  1. TYSABRI [Suspect]
     Indication: MULTIPLE SCLEROSIS
     Route: 042
     Dates: start: 20100601

REACTIONS (18)
  - Cataract [Recovered/Resolved]
  - Optic nerve injury [Unknown]
  - Vision blurred [Unknown]
  - Diplopia [Recovered/Resolved]
  - Cardiac disorder [Not Recovered/Not Resolved]
  - Musculoskeletal stiffness [Not Recovered/Not Resolved]
  - Optic neuritis [Not Recovered/Not Resolved]
  - Musculoskeletal disorder [Unknown]
  - Pain in extremity [Recovered/Resolved]
  - Muscular weakness [Not Recovered/Not Resolved]
  - Facial pain [Unknown]
  - Migraine [Recovered/Resolved]
  - Diabetes mellitus [Not Recovered/Not Resolved]
  - Reading disorder [Unknown]
  - Multiple sclerosis relapse [Unknown]
  - Headache [Unknown]
  - Fatigue [Not Recovered/Not Resolved]
  - Bronchitis [Recovered/Resolved]
